FAERS Safety Report 11302125 (Version 2)
Quarter: 2015Q4

REPORT INFORMATION
  Report Type: Spontaneous
  Country: US (occurrence: US)
  Receive Date: 20150722
  Receipt Date: 20151027
  Transmission Date: 20160304
  Serious: No
  Sender: FDA-Public Use
  Company Number: US-ELI_LILLY_AND_COMPANY-US201008001106

PATIENT
  Age: 67 Year
  Sex: Female

DRUGS (2)
  1. EVISTA [Suspect]
     Active Substance: RALOXIFENE HYDROCHLORIDE
     Indication: OSTEOPOROSIS
     Dosage: 60 MG, DAILY (1/D)
  2. FORTEO [Suspect]
     Active Substance: TERIPARATIDE
     Indication: OSTEOPOROSIS
     Dosage: 20 UG, DAILY (1/D)
     Dates: start: 20100708

REACTIONS (10)
  - Injection site erythema [Unknown]
  - Crying [Unknown]
  - Depression [Recovering/Resolving]
  - Contusion [Unknown]
  - Injection site bruising [Unknown]
  - Bone density decreased [Unknown]
  - Rash [Unknown]
  - Abdominal pain upper [Unknown]
  - Somnolence [Unknown]
  - Injection site urticaria [Unknown]

NARRATIVE: CASE EVENT DATE: 20100801
